FAERS Safety Report 6714419-7 (Version None)
Quarter: 2010Q2

REPORT INFORMATION
  Report Type: 
  Country: None (occurrence: None)
  Receive Date: 20100506
  Receipt Date: 20100423
  Transmission Date: 20101027
  Serious: Yes (Death)
  Sender: FDA-Public Use
  Company Number: IN-GENENTECH-300650

PATIENT
  Sex: Female

DRUGS (2)
  1. RITUXIMAB [Suspect]
     Indication: THROMBOTIC THROMBOCYTOPENIC PURPURA
     Dosage: 50 MG, SINGLE
     Route: 065
     Dates: start: 20100414, end: 20100414
  2. DEXAMETHASONE [Suspect]
     Indication: MICROANGIOPATHIC HAEMOLYTIC ANAEMIA
     Route: 065

REACTIONS (1)
  - CONVULSION [None]
